FAERS Safety Report 12268166 (Version 1)
Quarter: 2016Q2

REPORT INFORMATION
  Report Type: Spontaneous
  Country: US (occurrence: US)
  Receive Date: 20160414
  Receipt Date: 20160414
  Transmission Date: 20160815
  Serious: Yes (Other)
  Sender: FDA-Public Use
  Company Number: US-EMD SERONO-8077165

PATIENT
  Sex: Female

DRUGS (1)
  1. REBIF [Suspect]
     Active Substance: INTERFERON BETA-1A
     Indication: MULTIPLE SCLEROSIS
     Dates: start: 2004, end: 20160321

REACTIONS (5)
  - Cerebrovascular accident [Recovered/Resolved]
  - Cerebral infarction [Recovered/Resolved]
  - Multiple sclerosis [Unknown]
  - Hypertension [Recovering/Resolving]
  - Pain in extremity [Unknown]

NARRATIVE: CASE EVENT DATE: 2009
